FAERS Safety Report 17466463 (Version 1)
Quarter: 2020Q1

REPORT INFORMATION
  Report Type: Spontaneous
  Country: US (occurrence: US)
  Receive Date: 20200227
  Receipt Date: 20200227
  Transmission Date: 20200409
  Serious: Yes (Other)
  Sender: FDA-Public Use
  Company Number: US-ROCHE-2557743

PATIENT
  Sex: Female
  Weight: 90.7 kg

DRUGS (4)
  1. ATIVAN [Concomitant]
     Active Substance: LORAZEPAM
  2. LATUDA [Concomitant]
     Active Substance: LURASIDONE HYDROCHLORIDE
  3. WELLBUTRIN [Concomitant]
     Active Substance: BUPROPION HYDROCHLORIDE
  4. KLONOPIN [Suspect]
     Active Substance: CLONAZEPAM
     Indication: PRODUCT USED FOR UNKNOWN INDICATION
     Route: 065

REACTIONS (17)
  - Palpitations [Unknown]
  - Weight increased [Unknown]
  - Seizure [Unknown]
  - Autism spectrum disorder [Unknown]
  - Suicidal ideation [Unknown]
  - Cardiac disorder [Unknown]
  - Syncope [Unknown]
  - Crying [Unknown]
  - Cognitive disorder [Unknown]
  - Memory impairment [Unknown]
  - Long QT syndrome [Unknown]
  - Depression [Unknown]
  - Anxiety [Unknown]
  - Drug ineffective [Unknown]
  - Post-traumatic stress disorder [Unknown]
  - Hunger [Unknown]
  - Amnesia [Unknown]
